FAERS Safety Report 14385536 (Version 2)
Quarter: 2018Q2

REPORT INFORMATION
  Report Type: Spontaneous
  Country: US (occurrence: US)
  Receive Date: 20180115
  Receipt Date: 20180614
  Transmission Date: 20180711
  Serious: Yes (Other)
  Sender: FDA-Public Use
  Company Number: US-SA-2016SA234057

PATIENT
  Age: 51 Year
  Sex: Female
  Weight: 84 kg

DRUGS (11)
  1. TAXOTERE [Suspect]
     Active Substance: DOCETAXEL
     Dosage: 138 MG -150 ,Q3W
     Route: 042
     Dates: start: 20121011, end: 20121011
  2. ZOFRAN [ONDANSETRON HYDROCHLORIDE] [Concomitant]
  3. TAMOXIFEN [Concomitant]
     Active Substance: TAMOXIFEN
  4. TAXOTERE [Suspect]
     Active Substance: DOCETAXEL
     Indication: INVASIVE DUCTAL BREAST CARCINOMA
     Dosage: 138 MG -150 MGQ3W
     Route: 042
     Dates: start: 20120321, end: 20120321
  5. NEOSAR [Concomitant]
     Active Substance: CYCLOPHOSPHAMIDE
  6. HERCEPTIN [Concomitant]
     Active Substance: TRASTUZUMAB
     Dosage: UNK UNK,QCY
     Route: 065
     Dates: start: 20130402, end: 20130402
  7. LISINOPRIL. [Concomitant]
     Active Substance: LISINOPRIL
  8. BENADRYL [Concomitant]
     Active Substance: DIPHENHYDRAMINE HYDROCHLORIDE
  9. CYTOXAN [Concomitant]
     Active Substance: CYCLOPHOSPHAMIDE
  10. PEPCID [FAMOTIDINE] [Concomitant]
  11. DECADRON [DEXAMETHASONE ACETATE] [Concomitant]

REACTIONS (6)
  - Emotional distress [Unknown]
  - Psychological trauma [Unknown]
  - Alopecia [Recovering/Resolving]
  - Pain [Unknown]
  - Anxiety [Unknown]
  - Impaired quality of life [Unknown]

NARRATIVE: CASE EVENT DATE: 201207
